FAERS Safety Report 7157364-8 (Version None)
Quarter: 2010Q4

REPORT INFORMATION
  Report Type: 
  Country: None (occurrence: None)
  Receive Date: 20101122
  Receipt Date: 20101105
  Transmission Date: 20110411
  Serious: Yes (Hospitalization, Other)
  Sender: FDA-Public Use
  Company Number: 2010PROUSA00108

PATIENT
  Age: 73 Year
  Sex: Male
  Weight: 92.5 kg

DRUGS (3)
  1. PROVENGE [Suspect]
     Indication: PROSTATE CANCER METASTATIC
     Dosage: 250 ML, SINGLE, INTRAVENOUS
     Route: 042
     Dates: start: 20100917, end: 20100917
  2. PROVENGE [Suspect]
     Dosage: 250 ML, SINGLE, INTRAVENOUS
     Route: 042
     Dates: start: 20100930, end: 20100930
  3. PROVENGE [Suspect]
     Dosage: 250 ML, SINGLE, INTRAVENOUS
     Route: 042
     Dates: start: 20101014, end: 20101014

REACTIONS (6)
  - BACK PAIN [None]
  - BLOOD COUNT ABNORMAL [None]
  - FATIGUE [None]
  - HYPOAESTHESIA [None]
  - RENAL IMPAIRMENT [None]
  - UNEVALUABLE EVENT [None]
